FAERS Safety Report 4979657-2 (Version None)
Quarter: 2006Q2

REPORT INFORMATION
  Report Type: 
  Country: None (occurrence: None)
  Receive Date: 20060421
  Receipt Date: 20060210
  Transmission Date: 20061013
  Serious: Yes (Death)
  Sender: FDA-Public Use
  Company Number: CHWYE383910FEB06

PATIENT
  Age: 57 Year
  Sex: Male

DRUGS (1)
  1. ENBREL [Suspect]
     Indication: DRUG USE FOR UNKNOWN INDICATION
     Route: 058
     Dates: end: 20060101

REACTIONS (11)
  - ANEURYSM [None]
  - BRAIN OEDEMA [None]
  - CARDIAC FAILURE ACUTE [None]
  - CARDIOGENIC SHOCK [None]
  - DILATATION ATRIAL [None]
  - MYOCARDIAL INFARCTION [None]
  - PANCREATIC DISORDER [None]
  - PANCREATIC NECROSIS [None]
  - PULMONARY EMBOLISM [None]
  - PULMONARY OEDEMA [None]
  - VENTRICULAR HYPERTROPHY [None]
